FAERS Safety Report 14194703 (Version 1)
Quarter: 2017Q4

REPORT INFORMATION
  Report Type: Spontaneous
  Country: US (occurrence: None)
  Receive Date: 20171115
  Receipt Date: 20171115
  Transmission Date: 20180321
  Serious: No
  Sender: FDA-Public Use
  Company Number: None

PATIENT
  Age: 66 Year
  Sex: Male

DRUGS (1)
  1. TAFINLAR [Suspect]
     Active Substance: DABRAFENIB MESYLATE

REACTIONS (3)
  - Hyperkeratosis [None]
  - Palmar-plantar erythrodysaesthesia syndrome [None]
  - Pain [None]

NARRATIVE: CASE EVENT DATE: 20171015
